FAERS Safety Report 7134582 (Version 3)
Quarter: 2015Q1

REPORT INFORMATION
  Report Type: Report from Study
  Country: US (occurrence: US)
  Receive Date: 20090930
  Receipt Date: 20150113
  Transmission Date: 20150721
  Serious: Yes (Hospitalization)
  Sender: FDA-Public Use
  Company Number: US-BIOGENIDEC-2009BI017816

PATIENT
  Age: 28 Year
  Sex: Female
  Weight: 108 kg

DRUGS (3)
  1. TYSABRI [Suspect]
     Active Substance: NATALIZUMAB
     Indication: MULTIPLE SCLEROSIS
     Route: 042
     Dates: start: 20090605, end: 20090605
  2. Z-PACK [Concomitant]
     Active Substance: AZITHROMYCIN DIHYDRATE
     Dates: start: 20090520
  3. PRILOSEC [Concomitant]
     Active Substance: OMEPRAZOLE MAGNESIUM
     Dates: start: 20090520

REACTIONS (6)
  - Pyrexia [Recovered/Resolved]
  - Vomiting [Recovered/Resolved]
  - General physical health deterioration [Unknown]
  - Dizziness [Recovered/Resolved]
  - Systemic inflammatory response syndrome [Recovered/Resolved]
  - Visual impairment [Unknown]

NARRATIVE: CASE EVENT DATE: 20090605
